FAERS Safety Report 24033418 (Version 1)
Quarter: 2024Q3

REPORT INFORMATION
  Report Type: Spontaneous
  Country: US (occurrence: US)
  Receive Date: 20240701
  Receipt Date: 20240701
  Transmission Date: 20241017
  Serious: No
  Sender: BAUSCH AND LOMB
  Company Number: US-BAUSCHBL-2024BNL028972

PATIENT
  Age: 76 Year
  Sex: Female

DRUGS (3)
  1. VYZULTA [Suspect]
     Active Substance: LATANOPROSTENE BUNOD
     Indication: Glaucoma
     Route: 047
     Dates: start: 2022
  2. BRIMONIDINE TARTRATE [Suspect]
     Active Substance: BRIMONIDINE TARTRATE
     Indication: Glaucoma
     Route: 047
  3. UNSPECIFIED INGREDIENT [Suspect]
     Active Substance: UNSPECIFIED INGREDIENT
     Indication: Dry eye
     Route: 047

REACTIONS (3)
  - Eye irritation [Unknown]
  - Product storage error [Unknown]
  - Poor quality product administered [Unknown]
